FAERS Safety Report 4905651-3 (Version None)
Quarter: 2006Q1

REPORT INFORMATION
  Report Type: 
  Country: None (occurrence: None)
  Receive Date: 20060203
  Receipt Date: 20060120
  Transmission Date: 20060701
  Serious: Yes (Hospitalization)
  Sender: FDA-Public Use
  Company Number: 2005BI015014

PATIENT
  Age: 51 Year
  Sex: Female

DRUGS (2)
  1. AVONEX [Suspect]
     Indication: MULTIPLE SCLEROSIS
     Dosage: 30 UG; QW; IM
     Route: 030
     Dates: start: 20010612
  2. AVONEX [Suspect]
     Indication: MULTIPLE SCLEROSIS
     Dosage: 30 UG; QW; IM
     Route: 030
     Dates: end: 20051209

REACTIONS (6)
  - ARTERIOSPASM CORONARY [None]
  - CARDIOMEGALY [None]
  - CHEST PAIN [None]
  - HYPOXIA [None]
  - PERICARDIAL EFFUSION [None]
  - URINARY TRACT INFECTION [None]
